FAERS Safety Report 8455005-0 (Version None)
Quarter: 2012Q2

REPORT INFORMATION
  Report Type: 
  Country: None (occurrence: None)
  Receive Date: 20120621
  Receipt Date: 20120613
  Transmission Date: 20120825
  Serious: Yes (Other)
  Sender: FDA-Public Use
  Company Number: US-PFIZER INC-2012142211

PATIENT
  Age: 14 Year
  Sex: Female

DRUGS (2)
  1. ZOSYN [Suspect]
     Dosage: 2.25 G, EVERY 8 HOURS
     Route: 042
     Dates: start: 20120412, end: 20120417
  2. ZOSYN [Suspect]
     Dosage: 3.375 G, EVERY 6 HOURS
     Route: 042
     Dates: start: 20120417, end: 20120424

REACTIONS (4)
  - THROMBOCYTOPENIA [None]
  - LEUKOPENIA [None]
  - PYREXIA [None]
  - ANAEMIA [None]
